FAERS Safety Report 8985730 (Version 1)
Quarter: 2012Q4

REPORT INFORMATION
  Report Type: Report from Study
  Country: FR (occurrence: FR)
  Receive Date: 20121226
  Receipt Date: 20121226
  Transmission Date: 20130627
  Serious: Yes (Hospitalization)
  Sender: FDA-Public Use
  Company Number: FR-ASTELLAS-2012EU010965

PATIENT
  Age: 60 Year
  Sex: Female
  Weight: 74 kg

DRUGS (9)
  1. TACROLIMUS SYSTEMIC [Suspect]
     Indication: PROPHYLAXIS AGAINST TRANSPLANT REJECTION
     Dosage: 1 mg, UID/QD
     Route: 048
     Dates: start: 20060720
  2. MYCOPHENOLATE MOFETIL [Suspect]
     Indication: PROPHYLAXIS AGAINST TRANSPLANT REJECTION
     Dosage: 1 g, UID/QD
     Route: 048
     Dates: start: 20060720
  3. MYCOPHENOLATE MOFETIL [Suspect]
     Dosage: 500 mg, UID/QD
     Route: 048
  4. LANZOR [Concomitant]
     Dosage: 30 mg, UID/QD
     Route: 065
     Dates: start: 20060819
  5. RANITEC [Concomitant]
     Dosage: 20 mg, Unknown/D
     Route: 065
     Dates: start: 20060810
  6. AERIUS                             /01398501/ [Concomitant]
     Dosage: 5 mg, Unknown/D
     Route: 065
     Dates: start: 20060918
  7. INIPOMP [Concomitant]
     Dosage: 40 mg, bid
     Route: 065
  8. ULCAR                              /00434701/ [Concomitant]
     Dosage: UNK
     Route: 065
  9. TENORMINE [Concomitant]
     Dosage: 50 mg, Unknown/D
     Route: 065

REACTIONS (3)
  - Angioedema [Recovered/Resolved]
  - Biliary anastomosis complication [Not Recovered/Not Resolved]
  - Biliary anastomosis complication [Recovered/Resolved]
